FAERS Safety Report 6903445-0 (Version None)
Quarter: 2010Q3

REPORT INFORMATION
  Report Type: 
  Country: None (occurrence: None)
  Receive Date: 20100803
  Receipt Date: 20081002
  Transmission Date: 20110219
  Serious: No
  Sender: FDA-Public Use
  Company Number: US-PFIZER INC-2008083712

PATIENT
  Sex: Female
  Weight: 78.47 kg

DRUGS (1)
  1. LYRICA [Suspect]
     Indication: PAIN IN EXTREMITY
     Route: 048
     Dates: start: 20081001

REACTIONS (4)
  - COGNITIVE DISORDER [None]
  - HYPOAESTHESIA [None]
  - PARAESTHESIA [None]
  - UNEVALUABLE EVENT [None]
